FAERS Safety Report 19896389 (Version 1)
Quarter: 2021Q3

REPORT INFORMATION
  Report Type: Spontaneous
  Country: CN (occurrence: CN)
  Receive Date: 20210929
  Receipt Date: 20210929
  Transmission Date: 20211014
  Serious: Yes (Other)
  Sender: FDA-Public Use
  Company Number: CN-ROCHE-2920782

PATIENT
  Age: 61 Year
  Sex: Female

DRUGS (12)
  1. 5?FLUOROURACIL [Concomitant]
     Active Substance: FLUOROURACIL
     Indication: CANCER SURGERY
     Dosage: FOLFOX: 12 CYCLES
     Dates: start: 201810, end: 20190717
  2. OXALIPLATIN. [Concomitant]
     Active Substance: OXALIPLATIN
     Indication: CANCER SURGERY
     Dosage: FOLFOX: 12 CYCLES
     Dates: start: 201810, end: 20190717
  3. 5?FLUOROURACIL [Concomitant]
     Active Substance: FLUOROURACIL
     Dosage: FOLFIRI: 12 CYCLES
     Dates: start: 20200113, end: 20200920
  4. IRINOTECAN [Concomitant]
     Active Substance: IRINOTECAN
     Indication: CANCER SURGERY
     Dosage: FOLFIRI: 12 CYCLES
     Dates: start: 20200113, end: 20200920
  5. BEVACIZUMAB. [Suspect]
     Active Substance: BEVACIZUMAB
     Dosage: 4 CYCLES
     Route: 065
     Dates: start: 201907, end: 201910
  6. 5?FLUOROURACIL [Concomitant]
     Active Substance: FLUOROURACIL
     Dosage: 4 CYCLES
     Dates: start: 201907, end: 201910
  7. BEVACIZUMAB. [Suspect]
     Active Substance: BEVACIZUMAB
     Dosage: 12 CYCLES
     Route: 065
     Dates: start: 20200113, end: 20200920
  8. CALCIUM FOLINATE [Concomitant]
     Active Substance: LEUCOVORIN CALCIUM
     Indication: CANCER SURGERY
     Dosage: FOLFOX: 12 CYCLES
     Dates: start: 201810, end: 20190717
  9. BEVACIZUMAB. [Suspect]
     Active Substance: BEVACIZUMAB
     Route: 065
     Dates: start: 20201003
  10. CAPECITABINE. [Suspect]
     Active Substance: CAPECITABINE
     Indication: CANCER SURGERY
     Route: 048
     Dates: start: 20201003
  11. CALCIUM FOLINATE [Concomitant]
     Active Substance: LEUCOVORIN CALCIUM
     Dosage: FOLFIRI: 12 CYCLES
     Dates: start: 20200113, end: 20200920
  12. BEVACIZUMAB. [Suspect]
     Active Substance: BEVACIZUMAB
     Indication: CANCER SURGERY
     Dosage: 12 CYCLES
     Route: 065
     Dates: start: 201810, end: 20190717

REACTIONS (5)
  - Granulocyte count decreased [Unknown]
  - Neurotoxicity [Unknown]
  - Nausea [Unknown]
  - Deep vein thrombosis [Recovered/Resolved]
  - Palmar-plantar erythrodysaesthesia syndrome [Unknown]
